FAERS Safety Report 9601942 (Version 1)
Quarter: 2013Q4

REPORT INFORMATION
  Report Type: Spontaneous
  Country: CA (occurrence: None)
  Receive Date: 20131002
  Receipt Date: 20131002
  Transmission Date: 20140711
  Serious: Yes (Other)
  Sender: FDA-Public Use
  Company Number: AG-2013-015402

PATIENT
  Age: 76 Year
  Sex: Male

DRUGS (2)
  1. CHLORAMBUCIL (CHLORAMBUCIL) (UNKNOWN) [Suspect]
     Indication: CHEMOTHERAPY
  2. DEXAMETHASONE (DEXAMETHASONE) (UNKNOWN) [Suspect]
     Indication: CHEMOTHERAPY

REACTIONS (7)
  - Retroperitoneal haemorrhage [None]
  - Arthralgia [None]
  - Nausea [None]
  - Vomiting [None]
  - Hypotension [None]
  - Unresponsive to stimuli [None]
  - Pulseless electrical activity [None]
